FAERS Safety Report 6856514-8 (Version None)
Quarter: 2010Q3

REPORT INFORMATION
  Report Type: 
  Country: None (occurrence: None)
  Receive Date: 20100719
  Receipt Date: 20100706
  Transmission Date: 20110219
  Serious: Yes (Hospitalization, Other)
  Sender: FDA-Public Use
  Company Number: PHFR2010GB01007

PATIENT
  Sex: Male

DRUGS (1)
  1. CLOZARIL [Suspect]
     Indication: SCHIZOPHRENIA
     Dosage: 150MG MANE, 125MG AFTERNOON, 250MG NOCTE
     Route: 048
     Dates: start: 19971027

REACTIONS (5)
  - HAEMOGLOBIN DECREASED [None]
  - LOWER RESPIRATORY TRACT INFECTION [None]
  - OXYGEN SATURATION DECREASED [None]
  - PLATELET COUNT INCREASED [None]
  - SOMNOLENCE [None]
